FAERS Safety Report 5445877-6 (Version None)
Quarter: 2007Q3

REPORT INFORMATION
  Report Type: 
  Country: None (occurrence: None)
  Receive Date: 20070907
  Receipt Date: 20070831
  Transmission Date: 20080115
  Serious: Yes (Other)
  Sender: FDA-Public Use
  Company Number: PHBS2007BE05116

PATIENT
  Age: 71 Year
  Sex: Female

DRUGS (5)
  1. MIACALCIN [Suspect]
     Indication: COMPLEX REGIONAL PAIN SYNDROME
     Dosage: 50 IU/DAY
     Route: 058
     Dates: start: 20070307, end: 20070310
  2. MIACALCIN [Suspect]
     Dosage: 100 IU/DAY
     Dates: start: 20070311, end: 20070701
  3. SINTROM [Concomitant]
     Indication: DEEP VEIN THROMBOSIS
     Dosage: 3 MG, QD
     Dates: start: 19970101, end: 19980101
  4. CONTRAMAL [Concomitant]
     Dosage: 20 DF, TID
  5. DAFALGAN [Concomitant]
     Dosage: 1 D/DAY

REACTIONS (4)
  - ERYTHEMA [None]
  - HEART RATE INCREASED [None]
  - HYPERSENSITIVITY [None]
  - TACHYCARDIA [None]
